FAERS Safety Report 6216314-9 (Version None)
Quarter: 2009Q2

REPORT INFORMATION
  Report Type: 
  Country: None (occurrence: None)
  Receive Date: 20090605
  Receipt Date: 20090528
  Transmission Date: 20091009
  Serious: Yes (Other)
  Sender: FDA-Public Use
  Company Number: US-JNJFOC-20090600078

PATIENT
  Sex: Female
  Weight: 81.19 kg

DRUGS (12)
  1. DURAGESIC-100 [Suspect]
     Route: 062
  2. DURAGESIC-100 [Suspect]
     Indication: FIBROMYALGIA
     Route: 062
  3. RITALIN LA [Concomitant]
     Indication: FIBROMYALGIA
     Route: 048
  4. SYNTHROID [Concomitant]
     Indication: THYROID DISORDER
     Route: 048
  5. CLONAZEPAM [Concomitant]
     Indication: RESTLESS LEGS SYNDROME
     Dosage: 1 MG TABLET 1AND 1/2 DAILY AS NEEDED
     Route: 048
  6. TRAZODONE HCL [Concomitant]
     Indication: DEPRESSION
     Dosage: 150 MG TABLET 1AND 1/2 AT BED TIME
     Route: 048
  7. VALIUM [Concomitant]
     Indication: DEPRESSION
     Route: 048
  8. XANAX [Concomitant]
     Indication: DEPRESSION
     Route: 048
  9. LIDODERM [Concomitant]
     Indication: FIBROMYALGIA
     Route: 062
  10. LEXAPRO [Concomitant]
     Indication: DEPRESSION
     Route: 048
  11. DILAUDID [Concomitant]
     Indication: FIBROMYALGIA
     Route: 048
  12. SKELAXIN [Concomitant]
     Indication: FIBROMYALGIA
     Route: 048

REACTIONS (3)
  - CARDIAC FAILURE CONGESTIVE [None]
  - DRUG PRESCRIBING ERROR [None]
  - WRONG TECHNIQUE IN DRUG USAGE PROCESS [None]
